FAERS Safety Report 6493407-2 (Version None)
Quarter: 2009Q4

REPORT INFORMATION
  Report Type: 
  Country: None (occurrence: None)
  Receive Date: 20091214
  Receipt Date: 20091202
  Transmission Date: 20100525
  Serious: Yes (Other)
  Sender: FDA-Public Use
  Company Number: US-MERCK-0806USA08542

PATIENT
  Age: 71 Year
  Sex: Female
  Weight: 54 kg

DRUGS (2)
  1. FOSAMAX [Suspect]
     Indication: OSTEOPENIA
     Route: 048
     Dates: start: 20000101, end: 20060101
  2. FOSAMAX PLUS D [Suspect]
     Indication: OSTEOPENIA
     Route: 048
     Dates: start: 20000101, end: 20060101

REACTIONS (21)
  - ABDOMINAL DISTENSION [None]
  - ATROPHY [None]
  - BREAST NEOPLASM [None]
  - DEMENTIA [None]
  - DENTAL CARIES [None]
  - DEVICE RELATED INFECTION [None]
  - DYSURIA [None]
  - FALL [None]
  - FRACTURE [None]
  - HAEMATOMA [None]
  - IMPLANT SITE PAIN [None]
  - MEDICAL DEVICE COMPLICATION [None]
  - OSTEONECROSIS [None]
  - PAIN IN JAW [None]
  - POSTMENOPAUSAL HAEMORRHAGE [None]
  - TEMPOROMANDIBULAR JOINT SYNDROME [None]
  - TOOTH DISORDER [None]
  - TOOTH INFECTION [None]
  - TOOTH LOSS [None]
  - VAGINAL STRICTURE [None]
  - WEIGHT DECREASED [None]
